FAERS Safety Report 7529385-4 (Version None)
Quarter: 2011Q2

REPORT INFORMATION
  Report Type: 
  Country: None (occurrence: None)
  Receive Date: 20110607
  Receipt Date: 20110530
  Transmission Date: 20111010
  Serious: Yes (Hospitalization)
  Sender: FDA-Public Use
  Company Number: JP-JNJFOC-20100402651

PATIENT
  Sex: Male
  Weight: 51 kg

DRUGS (18)
  1. FENTANYL-100 [Suspect]
     Route: 062
     Dates: start: 20091101
  2. FENTANYL-100 [Suspect]
     Route: 062
     Dates: start: 20090101
  3. FENTANYL-100 [Suspect]
     Route: 062
     Dates: start: 20090720, end: 20090722
  4. FENTANYL-100 [Suspect]
     Route: 062
  5. FENTANYL-100 [Suspect]
     Route: 062
  6. FENTANYL-100 [Suspect]
     Route: 062
     Dates: start: 20090717, end: 20090719
  7. FENTANYL-100 [Suspect]
     Route: 062
     Dates: start: 20090720, end: 20090722
  8. FENTANYL-100 [Suspect]
     Indication: CANCER PAIN
     Route: 062
  9. FENTANYL-100 [Suspect]
     Route: 062
     Dates: start: 20091110, end: 20091115
  10. FENTANYL-100 [Suspect]
     Indication: LARGE INTESTINE CARCINOMA
     Route: 062
     Dates: start: 20091110, end: 20091115
  11. FENTANYL-100 [Suspect]
     Route: 062
     Dates: start: 20091101
  12. FENTANYL-100 [Suspect]
     Route: 062
     Dates: start: 20091105, end: 20091109
  13. FENTANYL-100 [Suspect]
     Route: 062
     Dates: start: 20090717, end: 20090719
  14. FENTANYL-100 [Suspect]
     Route: 062
     Dates: start: 20091105, end: 20091109
  15. FENTANYL-100 [Suspect]
     Route: 062
     Dates: start: 20090723, end: 20091104
  16. FENTANYL-100 [Suspect]
     Route: 062
     Dates: start: 20090723, end: 20091104
  17. FENTANYL-100 [Suspect]
     Route: 062
     Dates: start: 20090101
  18. FENTANYL-100 [Suspect]
     Route: 062

REACTIONS (5)
  - DRUG EFFECT DECREASED [None]
  - MYOCLONUS [None]
  - DEPRESSED LEVEL OF CONSCIOUSNESS [None]
  - OVERDOSE [None]
  - PYREXIA [None]
